FAERS Safety Report 20777070 (Version 1)
Quarter: 2022Q2

REPORT INFORMATION
  Report Type: Spontaneous
  Country: US (occurrence: US)
  Receive Date: 20220503
  Receipt Date: 20220503
  Transmission Date: 20220721
  Serious: No
  Sender: FDA-Public Use
  Company Number: US-AMGEN-USASP2022069545

PATIENT
  Age: 79 Year
  Sex: Female
  Weight: 53.1 kg

DRUGS (3)
  1. PROLIA [Suspect]
     Active Substance: DENOSUMAB
     Indication: Product used for unknown indication
     Dosage: UNK
     Route: 065
  2. TYVASO [Suspect]
     Active Substance: TREPROSTINIL
     Indication: Pulmonary arterial hypertension
     Dosage: (18-54 MCG) 0.6 MILLIGRAM/ML, QID
     Dates: start: 20190919
  3. AMBRISENTAN [Concomitant]
     Active Substance: AMBRISENTAN
     Route: 065

REACTIONS (2)
  - Swelling face [Unknown]
  - Tooth extraction [Unknown]

NARRATIVE: CASE EVENT DATE: 20190101
